FAERS Safety Report 25566302 (Version 1)
Quarter: 2025Q3

REPORT INFORMATION
  Report Type: Spontaneous
  Country: CN (occurrence: CN)
  Receive Date: 20250716
  Receipt Date: 20250716
  Transmission Date: 20251021
  Serious: Yes (Other)
  Sender: PFIZER
  Company Number: CN-PFIZER INC-202500141986

PATIENT
  Age: 53 Year
  Sex: Male

DRUGS (1)
  1. LORBRENA [Suspect]
     Active Substance: LORLATINIB
     Indication: Lung neoplasm malignant
     Dosage: 100 MG, 1X/DAY
     Route: 048

REACTIONS (4)
  - Second primary malignancy [Unknown]
  - Gastric neoplasm [Unknown]
  - Constipation [Unknown]
  - Lipids increased [Unknown]
